FAERS Safety Report 17505587 (Version 1)
Quarter: 2020Q1

REPORT INFORMATION
  Report Type: Report from Study
  Country: None (occurrence: BR)
  Receive Date: 20200306
  Receipt Date: 20200306
  Transmission Date: 20200409
  Serious: Yes (Other)
  Sender: FDA-Public Use
  Company Number: BR-ABBVIE-20K-020-3299861-00

PATIENT
  Age: 65 Year
  Sex: Female
  Weight: 40 kg

DRUGS (2)
  1. HUMIRA [Suspect]
     Active Substance: ADALIMUMAB
     Indication: RHEUMATOID ARTHRITIS
     Route: 058
     Dates: start: 20160929, end: 20200225
  2. ARAVA [Concomitant]
     Active Substance: LEFLUNOMIDE
     Indication: RHEUMATIC DISORDER
     Route: 048
     Dates: start: 2015

REACTIONS (13)
  - Dysstasia [Unknown]
  - Neck pain [Unknown]
  - Musculoskeletal stiffness [Unknown]
  - Malaise [Unknown]
  - Tuberculosis [Not Recovered/Not Resolved]
  - Oral discharge [Recovered/Resolved]
  - Mouth haemorrhage [Recovered/Resolved]
  - Syncope [Not Recovered/Not Resolved]
  - Spinal pain [Unknown]
  - Decreased appetite [Unknown]
  - Crying [Unknown]
  - Pain [Unknown]
  - Immunodeficiency [Not Recovered/Not Resolved]

NARRATIVE: CASE EVENT DATE: 20200221
